FAERS Safety Report 20094393 (Version 1)
Quarter: 2021Q4

REPORT INFORMATION
  Report Type: Spontaneous
  Country: NL (occurrence: NL)
  Receive Date: 20211122
  Receipt Date: 20211122
  Transmission Date: 20220303
  Serious: Yes (Hospitalization)
  Sender: FDA-Public Use
  Company Number: None

PATIENT
  Age: 53 Year
  Sex: Female
  Weight: 78 kg

DRUGS (7)
  1. NAPROXEN [Suspect]
     Active Substance: NAPROXEN
     Indication: Vasculitis
     Dosage: 500 MILLIGRAM DAILY; 1 X PER DAY 1 PIECE
     Dates: start: 202108, end: 20210904
  2. OMEPRAZOLE [Suspect]
     Active Substance: OMEPRAZOLE
     Indication: Vasculitis
     Dosage: 1 DOSAGE FORMS DAILY; 1 X PER DAY 1 PIECE
     Dates: start: 2010, end: 20210904
  3. CALCIUMCARB/COLECALC / TACAL D3 [Concomitant]
     Dosage: 500 MG,FORM STRENGTH:1,25G/400IE (500MG CA) / TACAL D3 MINT,THERAPY START DATE:THERAPY END DATE :ASK
  4. ASPIRIN [Concomitant]
     Active Substance: ASPIRIN
     Dosage: 80 MG (MILLIGRAM),THERAPY START DATE:THERAPY END DATE:ASKU
  5. MAGNESIUMGLUCONAAT [Concomitant]
     Dosage: 500 MG (MILLIGRAM),FORM STRENGTH:(1.2MMOL MAG) / ,THERAPY START DATE:THERAPY END DATE:ASKU
  6. LEVOTHYROXINE  (NATRIUM) / EUTHYROX [Concomitant]
     Dosage: 100 UG (MICROGRAMS),THERAPY START DATE:THERAPY END DATE:ASKU
  7. LOSARTAN  FO [Concomitant]
     Dosage: 50 MG (MILLIGRAM),THERAPY START DATE:THERAPY END DATE:ASKU

REACTIONS (1)
  - Delirium [Recovered/Resolved]

NARRATIVE: CASE EVENT DATE: 20210904
